FAERS Safety Report 21569032 (Version 1)
Quarter: 2022Q4

REPORT INFORMATION
  Report Type: Spontaneous
  Country: PT (occurrence: PT)
  Receive Date: 20221109
  Receipt Date: 20221109
  Transmission Date: 20230113
  Serious: Yes (Other)
  Sender: FDA-Public Use
  Company Number: PT-INFARMED-J202210-749

PATIENT
  Age: 51 Year
  Sex: Male

DRUGS (1)
  1. NAPROXEN [Suspect]
     Active Substance: NAPROXEN
     Indication: Product used for unknown indication
     Dosage: UNK
     Route: 065
     Dates: start: 2018

REACTIONS (3)
  - Lip oedema [Recovered/Resolved]
  - Oropharyngeal discomfort [Recovered/Resolved]
  - Dyspnoea [Recovered/Resolved]

NARRATIVE: CASE EVENT DATE: 20180101
